FAERS Safety Report 9006763 (Version 2)
Quarter: 2013Q1

REPORT INFORMATION
  Report Type: Spontaneous
  Country: US (occurrence: US)
  Receive Date: 20130110
  Receipt Date: 20130228
  Transmission Date: 20140127
  Serious: Yes (Disabling)
  Sender: FDA-Public Use
  Company Number: US-JNJFOC-20130101964

PATIENT
  Age: 43 None
  Sex: Male
  Weight: 108.86 kg

DRUGS (9)
  1. REMICADE [Suspect]
     Indication: COLITIS ULCERATIVE
     Dosage: DOSAGE: #2. FREQUENCY: FOR 0, 2, 6 WEEKS THEN EVERY 8 WEEKS.
     Route: 042
     Dates: start: 20120705
  2. REMICADE [Suspect]
     Indication: COLITIS ULCERATIVE
     Dosage: DOSAGE: #2. FREQUENCY: FOR 0, 2, 6 WEEKS THEN EVERY 8 WEEKS.
     Route: 042
     Dates: start: 20120509
  3. REMICADE [Suspect]
     Indication: COLITIS ULCERATIVE
     Dosage: DOSAGE: #2. FREQUENCY: FOR 0, 2, 6 WEEKS THEN EVERY 8 WEEKS.
     Route: 042
     Dates: start: 20120411
  4. REMICADE [Suspect]
     Indication: COLITIS ULCERATIVE
     Dosage: DRUG FREQUENCY: 0, 2, 6 WEEKS THEN EVERY 8 WEEKS. DOSAGE # 2.
     Route: 042
     Dates: start: 20120327
  5. REMICADE [Suspect]
     Indication: COLITIS ULCERATIVE
     Dosage: DOSAGE: #2. FREQUENCY: FOR 0, 2, 6 WEEKS THEN EVERY 8 WEEKS.
     Route: 042
     Dates: start: 20120830, end: 20120830
  6. BUDESONIDE [Concomitant]
     Route: 065
  7. VICODIN [Concomitant]
     Route: 065
  8. LOSARTAN POTASSIUM/HYDROCHLORTHIAZIDE [Concomitant]
     Route: 065
  9. MOTRIN [Concomitant]
     Route: 065

REACTIONS (6)
  - Psoriasis [Unknown]
  - Colectomy total [Unknown]
  - Psoriatic arthropathy [Not Recovered/Not Resolved]
  - Pharyngitis [Not Recovered/Not Resolved]
  - Ileostomy [Unknown]
  - Omentectomy [Unknown]
